FAERS Safety Report 5621350-7 (Version None)
Quarter: 2008Q1

REPORT INFORMATION
  Report Type: 
  Country: None (occurrence: None)
  Receive Date: 20080129
  Receipt Date: 20080114
  Transmission Date: 20080703
  Serious: Yes (Death)
  Sender: FDA-Public Use
  Company Number: B0504331A

PATIENT
  Age: 63 Year
  Sex: Female

DRUGS (3)
  1. CYCLOBENZAPRINE HCL [Suspect]
     Dosage: 10 MG/ORAL
     Route: 048
  2. BUPROPION HYDROCHLORIDE [Suspect]
     Dosage: 300 MG, ORAL
     Route: 048
  3. METHYLPHENIDATE HCL [Suspect]
     Dosage: ORAL
     Route: 048

REACTIONS (10)
  - BLOOD PRESSURE SYSTOLIC INCREASED [None]
  - BRADYCARDIA [None]
  - CARDIAC ARREST [None]
  - COMPLETED SUICIDE [None]
  - CONVULSION [None]
  - ELECTROCARDIOGRAM QRS COMPLEX PROLONGED [None]
  - ELECTROMECHANICAL DISSOCIATION [None]
  - HYPOTENSION [None]
  - INCORRECT DOSE ADMINISTERED [None]
  - SINUS TACHYCARDIA [None]
